FAERS Safety Report 24528026 (Version 2)
Quarter: 2024Q4

REPORT INFORMATION
  Report Type: Spontaneous
  Country: GB (occurrence: GB)
  Receive Date: 20241021
  Receipt Date: 20241101
  Transmission Date: 20250115
  Serious: Yes (Death, Hospitalization, Other)
  Sender: ASTELLAS
  Company Number: GB-GILEAD-2024-0691041

PATIENT
  Age: 38 Year
  Sex: Female

DRUGS (3)
  1. AMBISOME [Interacting]
     Active Substance: AMPHOTERICIN B
     Indication: Aspergillus infection
     Dosage: 3 MG/KG
     Route: 065
  2. AMBISOME [Interacting]
     Active Substance: AMPHOTERICIN B
     Indication: Mucormycosis
  3. VORICONAZOLE [Interacting]
     Active Substance: VORICONAZOLE
     Indication: Product used for unknown indication
     Route: 065

REACTIONS (1)
  - Disease progression [Fatal]
